FAERS Safety Report 23437647 (Version 1)
Quarter: 2024Q1

REPORT INFORMATION
  Report Type: Spontaneous
  Country: US (occurrence: US)
  Receive Date: 20240124
  Receipt Date: 20240124
  Transmission Date: 20240409
  Serious: No
  Sender: FDA-Public Use
  Company Number: US-PFIZER INC-202400020306

PATIENT
  Age: 72 Year
  Sex: Female
  Weight: 66.22 kg

DRUGS (1)
  1. XELJANZ XR [Suspect]
     Active Substance: TOFACITINIB CITRATE
     Indication: Arthritis
     Dosage: 11 MG

REACTIONS (2)
  - Blister [Unknown]
  - Back pain [Recovered/Resolved]
